FAERS Safety Report 9911822 (Version 1)
Quarter: 2014Q1

REPORT INFORMATION
  Report Type: Spontaneous
  Country: US (occurrence: US)
  Receive Date: 20140219
  Receipt Date: 20140219
  Transmission Date: 20141002
  Serious: No
  Sender: FDA-Public Use
  Company Number: US-MYLANLABS-2013S1004597

PATIENT
  Age: 55 Year
  Sex: Female

DRUGS (2)
  1. EPIPEN [Suspect]
  2. VIOXX [Suspect]

REACTIONS (1)
  - Drug hypersensitivity [Unknown]
